FAERS Safety Report 7680019-8 (Version None)
Quarter: 2011Q3

REPORT INFORMATION
  Report Type: 
  Country: None (occurrence: None)
  Receive Date: 20110812
  Receipt Date: 20110804
  Transmission Date: 20111222
  Serious: Yes (Hospitalization)
  Sender: FDA-Public Use
  Company Number: FR-NOVOPROD-333189

PATIENT

DRUGS (6)
  1. PIOGLITAZONE HYDROCHLORIDE/METFORMIN HYDROCHLORIDE [Suspect]
     Dosage: 15 MG/850 MG
     Route: 048
     Dates: start: 20080131, end: 20110610
  2. IRBESARTAN [Suspect]
     Dosage: 75 MG, QD
     Route: 048
     Dates: start: 20080101
  3. ASPIRIN [Suspect]
     Dosage: 160 MG, QD
     Route: 048
     Dates: start: 20080101
  4. REPAGLINIDE [Suspect]
     Indication: TYPE 2 DIABETES MELLITUS
     Dosage: UNK
     Route: 048
     Dates: start: 20080731
  5. CELECTOL [Suspect]
     Dosage: UNK
     Route: 065
     Dates: start: 20080101
  6. SIMAVASTATIN [Suspect]
     Dosage: 10 MG, QD
     Route: 048
     Dates: start: 20080101

REACTIONS (2)
  - BLADDER TRANSITIONAL CELL CARCINOMA STAGE III [None]
  - BLADDER NEOPLASM [None]
